FAERS Safety Report 12096679 (Version 1)
Quarter: 2016Q1

REPORT INFORMATION
  Report Type: Other
  Country: US (occurrence: US)
  Receive Date: 20160220
  Receipt Date: 20160220
  Transmission Date: 20160526
  Serious: No
  Sender: FDA-Public Use
  Company Number: US-ACORDA-ACO_108759_2015

PATIENT
  Age: 65 Year
  Sex: Female

DRUGS (3)
  1. AMPYRA [Suspect]
     Active Substance: DALFAMPRIDINE
     Dosage: 10 MG, BID
     Route: 048
     Dates: start: 20130415
  2. AMPYRA [Suspect]
     Active Substance: DALFAMPRIDINE
     Indication: MULTIPLE SCLEROSIS
     Dosage: 10 MG, BID
     Route: 048
     Dates: end: 201302
  3. AMPYRA [Suspect]
     Active Substance: DALFAMPRIDINE
     Dosage: 10MG, BID
     Route: 065
     Dates: start: 20150215

REACTIONS (5)
  - Therapy cessation [Unknown]
  - Motor dysfunction [Recovered/Resolved]
  - Dysstasia [Recovered/Resolved]
  - Muscular weakness [Recovered/Resolved]
  - Balance disorder [Recovered/Resolved]

NARRATIVE: CASE EVENT DATE: 20130215
